FAERS Safety Report 17138696 (Version 1)
Quarter: 2019Q4

REPORT INFORMATION
  Report Type: Spontaneous
  Country: US (occurrence: US)
  Receive Date: 20191119
  Receipt Date: 20191119
  Transmission Date: 20200122
  Serious: Yes (Hospitalization)
  Sender: FDA-Public Use
  Company Number: None

PATIENT
  Age: 42 Year
  Sex: Male
  Weight: 86 kg

DRUGS (1)
  1. OXCARBAZEPINE. [Suspect]
     Active Substance: OXCARBAZEPINE
     Indication: PAIN
     Route: 048
     Dates: start: 20180627, end: 20181024

REACTIONS (8)
  - Nausea [None]
  - Adrenal insufficiency [None]
  - Hypoosmolar state [None]
  - Vomiting [None]
  - Headache [None]
  - Retching [None]
  - Malaise [None]
  - Hyponatraemia [None]

NARRATIVE: CASE EVENT DATE: 20181020
